FAERS Safety Report 4490878-8 (Version None)
Quarter: 2004Q4

REPORT INFORMATION
  Report Type: 
  Country: None (occurrence: None)
  Receive Date: 20041027
  Receipt Date: 20041018
  Transmission Date: 20050328
  Serious: Yes (Other)
  Sender: FDA-Public Use
  Company Number: 2004-10-1044

PATIENT
  Age: 41 Year
  Sex: Female

DRUGS (1)
  1. INTRON A [Suspect]
     Indication: NON-HODGKIN'S LYMPHOMA
     Dosage: TIW INTRAVENOUS
     Route: 042
     Dates: start: 19970101, end: 20041013

REACTIONS (1)
  - LUNG ADENOCARCINOMA [None]
